FAERS Safety Report 8606705-0 (Version None)
Quarter: 2012Q3

REPORT INFORMATION
  Report Type: 
  Country: None (occurrence: None)
  Receive Date: 20120820
  Receipt Date: 20120810
  Transmission Date: 20120928
  Serious: Yes (Other)
  Sender: FDA-Public Use
  Company Number: JP-ABBOTT-12P-087-0968713-00

PATIENT
  Age: 67 Year
  Sex: Female
  Weight: 47 kg

DRUGS (18)
  1. SEVOFLURANE [Suspect]
     Indication: GENERAL ANAESTHESIA
     Dosage: 1.3%
  2. WARFARIN SODIUM [Concomitant]
     Indication: ATRIAL FIBRILLATION
  3. PROPOFOL [Suspect]
  4. PROPOFOL [Suspect]
  5. KETAMINE HCL [Suspect]
     Indication: GENERAL ANAESTHESIA
     Dosage: INDUCTION
  6. FENTANYL [Suspect]
     Dosage: INTERMITTENT DOSES FOR MAINTENANCE
  7. ULTIVA [Suspect]
     Indication: GENERAL ANAESTHESIA
     Dosage: CONTINUOUS INFUSION OF 0.15 MCG/KG/H
     Route: 041
  8. PROPOFOL [Suspect]
  9. PROPOFOL [Suspect]
  10. FENTANYL [Suspect]
     Indication: GENERAL ANAESTHESIA
     Route: 042
  11. SUGAMMADEX [Concomitant]
     Indication: ANAESTHESIA REVERSAL
  12. BENIDIPINE [Concomitant]
     Indication: ESSENTIAL HYPERTENSION
  13. KETAMINE HCL [Suspect]
     Dosage: DURING ANESTHESIA
  14. CIPRALAN [Concomitant]
     Indication: ATRIAL FIBRILLATION
  15. PROPOFOL [Suspect]
     Indication: GENERAL ANAESTHESIA
  16. HEPARIN [Concomitant]
     Indication: ANTICOAGULANT THERAPY
     Dosage: 500-700 U/H
  17. ROCURONIUM BROMIDE [Concomitant]
     Indication: HYPOTONIA
  18. WARFARIN SODIUM [Concomitant]
     Indication: DEEP VEIN THROMBOSIS

REACTIONS (1)
  - POSTERIOR REVERSIBLE ENCEPHALOPATHY SYNDROME [None]
